FAERS Safety Report 17315153 (Version 1)
Quarter: 2020Q1

REPORT INFORMATION
  Report Type: Spontaneous
  Country: HU (occurrence: HU)
  Receive Date: 20200124
  Receipt Date: 20200124
  Transmission Date: 20200409
  Serious: No
  Sender: FDA-Public Use
  Company Number: PHHY2018HU130694

PATIENT
  Age: 9 Year
  Sex: Male

DRUGS (4)
  1. MOFUDER [Suspect]
     Active Substance: MOMETASONE FUROATE
     Indication: DERMATITIS ATOPIC
     Dosage: UNK
     Route: 003
  2. PIMAFUCORT [Concomitant]
     Indication: DERMATITIS ATOPIC
     Dosage: UNK
     Route: 003
  3. TERBINAFINE. [Suspect]
     Active Substance: TERBINAFINE
     Indication: TINEA INFECTION
     Dosage: SYSTEMIC
     Route: 048
  4. ELOCOM [Concomitant]
     Active Substance: MOMETASONE FUROATE
     Indication: DERMATITIS ATOPIC
     Dosage: UNK
     Route: 003

REACTIONS (1)
  - Product use issue [Recovered/Resolved]
